FAERS Safety Report 19226456 (Version 1)
Quarter: 2021Q2

REPORT INFORMATION
  Report Type: Spontaneous
  Country: IT (occurrence: IT)
  Receive Date: 20210506
  Receipt Date: 20210506
  Transmission Date: 20210717
  Serious: Yes (Hospitalization)
  Sender: FDA-Public Use
  Company Number: NVSC2021IT095841

PATIENT
  Age: 38 Year
  Sex: Female
  Weight: 45 kg

DRUGS (3)
  1. DELORAZEPAM [Concomitant]
     Active Substance: DELORAZEPAM
     Indication: ANXIETY
     Dosage: 52 DRP, QD
     Route: 048
  2. PARACETAMOL [Suspect]
     Active Substance: ACETAMINOPHEN
     Indication: ANXIETY
     Dosage: 10 DF (TOTAL)
     Route: 048
  3. LARGACTIL [Concomitant]
     Active Substance: CHLORPROMAZINE
     Indication: SEDATION
     Dosage: 100 MG, QD
     Route: 048

REACTIONS (1)
  - Drug abuse [Recovered/Resolved]

NARRATIVE: CASE EVENT DATE: 20210414
